FAERS Safety Report 16825974 (Version 1)
Quarter: 2019Q3

REPORT INFORMATION
  Report Type: Spontaneous
  Country: IT (occurrence: IT)
  Receive Date: 20190919
  Receipt Date: 20190919
  Transmission Date: 20191005
  Serious: Yes (Other)
  Sender: FDA-Public Use
  Company Number: IT-NODEN DAC PHARMA-NOD-2019-000025

PATIENT
  Age: 27 Year
  Sex: Female

DRUGS (1)
  1. RASILEZ [Suspect]
     Active Substance: ALISKIREN
     Dosage: 450 MG, FILM COATED TABLET, ABUSE/MISUSE (CUMULATIVE DOSE TO FIRST REACTION IS 450 MG)
     Route: 048
     Dates: start: 20181125, end: 20181125

REACTIONS (2)
  - Hypotension [Recovering/Resolving]
  - Drug abuse [Recovering/Resolving]

NARRATIVE: CASE EVENT DATE: 20181125
